FAERS Safety Report 23762776 (Version 1)
Quarter: 2024Q2

REPORT INFORMATION
  Report Type: Spontaneous
  Country: MA (occurrence: None)
  Receive Date: 20240419
  Receipt Date: 20240419
  Transmission Date: 20240716
  Serious: Yes (Hospitalization, Other)
  Sender: FDA-Public Use
  Company Number: MA-Unichem Pharmaceuticals (USA) Inc-UCM202404-000414

PATIENT
  Age: 18 Year
  Sex: Male

DRUGS (8)
  1. QUETIAPINE [Suspect]
     Active Substance: QUETIAPINE
     Indication: Psychotic symptom
  2. QUETIAPINE [Suspect]
     Active Substance: QUETIAPINE
  3. ESCITALOPRAM [Suspect]
     Active Substance: ESCITALOPRAM OXALATE
     Indication: Psychotic symptom
  4. ESCITALOPRAM [Suspect]
     Active Substance: ESCITALOPRAM OXALATE
  5. OLANZAPINE [Concomitant]
     Active Substance: OLANZAPINE
     Indication: Schizophrenia
  6. OLANZAPINE [Concomitant]
     Active Substance: OLANZAPINE
  7. PAROXETINE [Concomitant]
     Active Substance: PAROXETINE
     Indication: Schizophrenia
  8. PAROXETINE [Concomitant]
     Active Substance: PAROXETINE

REACTIONS (2)
  - Drug interaction [Unknown]
  - Urinary retention [Recovered/Resolved]
